FAERS Safety Report 7593416-6 (Version None)
Quarter: 2011Q3

REPORT INFORMATION
  Report Type: 
  Country: None (occurrence: None)
  Receive Date: 20110706
  Receipt Date: 20110624
  Transmission Date: 20111222
  Serious: Yes (Hospitalization)
  Sender: FDA-Public Use
  Company Number: US-ELI_LILLY_AND_COMPANY-US201105001601

PATIENT
  Sex: Female
  Weight: 76.825 kg

DRUGS (3)
  1. ALIMTA [Suspect]
     Indication: RESPIRATORY TRACT NEOPLASM
     Dosage: 925 MG, Q21D
     Route: 042
     Dates: start: 20110323, end: 20110415
  2. FOLIC ACID [Concomitant]
     Dosage: 1 MG, UNK
     Route: 048
     Dates: start: 20110322
  3. VIT B12 [Concomitant]
     Dosage: UNK
     Dates: start: 20110322

REACTIONS (4)
  - RESPIRATORY DISTRESS [None]
  - DYSPNOEA EXERTIONAL [None]
  - CELLULITIS [None]
  - CHRONIC OBSTRUCTIVE PULMONARY DISEASE [None]
